FAERS Safety Report 13093717 (Version 15)
Quarter: 2018Q2

REPORT INFORMATION
  Report Type: Report from Study
  Country: CH (occurrence: CH)
  Receive Date: 20170106
  Receipt Date: 20180628
  Transmission Date: 20180711
  Serious: Yes (Death, Life-Threatening, Hospitalization)
  Sender: FDA-Public Use
  Company Number: PHHO2016CH017475

PATIENT
  Age: 57 Year
  Sex: Female
  Weight: 75 kg

DRUGS (25)
  1. TACROLIMUS. [Suspect]
     Active Substance: TACROLIMUS
     Dosage: 4 MG, UNK
     Route: 065
     Dates: start: 20161011, end: 20161117
  2. TACROLIMUS. [Suspect]
     Active Substance: TACROLIMUS
     Dosage: 3.5 MG, UNK
     Route: 065
     Dates: start: 20161118, end: 20161118
  3. TACROLIMUS. [Suspect]
     Active Substance: TACROLIMUS
     Dosage: 3 MG, UNK
     Route: 065
     Dates: start: 20161124, end: 20161124
  4. TACROLIMUS. [Suspect]
     Active Substance: TACROLIMUS
     Dosage: 1.5 MG, UNK
     Route: 065
     Dates: start: 20161125, end: 20161125
  5. PANTOPRAZOL [Concomitant]
     Active Substance: PANTOPRAZOLE SODIUM
     Indication: PRODUCT USED FOR UNKNOWN INDICATION
     Dosage: 40 MG, QD
     Route: 065
     Dates: start: 20161115, end: 20161125
  6. TACROLIMUS. [Suspect]
     Active Substance: TACROLIMUS
     Dosage: 2 MG, UNK
     Route: 065
     Dates: start: 20161122, end: 20161123
  7. TACROLIMUS. [Suspect]
     Active Substance: TACROLIMUS
     Dosage: 2 MG, UNK
     Route: 065
     Dates: start: 20160921, end: 20160923
  8. URSODEOXYCHOL [Concomitant]
     Indication: PROPHYLAXIS
     Dosage: 250 MG, TID
     Route: 065
     Dates: start: 20161108, end: 20161124
  9. KRP203 [Suspect]
     Active Substance: INVESTIGATIONAL PRODUCT
     Indication: STEM CELL TRANSPLANT
     Dosage: 3 MG, QD
     Route: 048
     Dates: start: 20160830, end: 20161107
  10. TACROLIMUS. [Suspect]
     Active Substance: TACROLIMUS
     Dosage: 2.5 MG, UNK
     Route: 065
     Dates: start: 20160924, end: 20160925
  11. TACROLIMUS. [Suspect]
     Active Substance: TACROLIMUS
     Dosage: 2 MG, UNK
     Route: 065
     Dates: start: 20160917, end: 20160918
  12. TACROLIMUS. [Suspect]
     Active Substance: TACROLIMUS
     Dosage: 3 MG, UNK
     Route: 065
     Dates: start: 20161119, end: 20161121
  13. TACROLIMUS. [Suspect]
     Active Substance: TACROLIMUS
     Dosage: 8 MG, UNK
     Route: 065
     Dates: start: 20160906, end: 20160915
  14. TACROLIMUS. [Suspect]
     Active Substance: TACROLIMUS
     Dosage: 3 MG, UNK
     Route: 065
     Dates: start: 20160919, end: 20160920
  15. TACROLIMUS. [Suspect]
     Active Substance: TACROLIMUS
     Dosage: UNK
     Route: 065
     Dates: start: 20161221, end: 20161226
  16. VALTREX [Suspect]
     Active Substance: VALACYCLOVIR HYDROCHLORIDE
     Indication: PROPHYLAXIS
     Dosage: UNK, NO TREATMENT
     Route: 065
  17. VALTREX [Suspect]
     Active Substance: VALACYCLOVIR HYDROCHLORIDE
     Dosage: 500 MG, BID
     Route: 065
     Dates: start: 20161210
  18. TRIMETOPRIM [Suspect]
     Active Substance: TRIMETHOPRIM
     Indication: PRODUCT USED FOR UNKNOWN INDICATION
     Dosage: UNK
     Route: 065
  19. SULFAMETHOXAZOLE [Concomitant]
     Active Substance: SULFAMETHOXAZOLE
     Indication: PROPHYLAXIS
     Dosage: 3 X 1 WEEK
     Route: 065
     Dates: end: 20161123
  20. KRP203 [Suspect]
     Active Substance: INVESTIGATIONAL PRODUCT
     Dosage: 1 MG, QD
     Route: 048
     Dates: start: 20161108, end: 20161115
  21. TACROLIMUS. [Suspect]
     Active Substance: TACROLIMUS
     Indication: PROPHYLAXIS
     Dosage: 2 MG, UNK
     Route: 065
     Dates: start: 20160905, end: 20160905
  22. TACROLIMUS. [Suspect]
     Active Substance: TACROLIMUS
     Dosage: 4 MG, UNK
     Route: 065
     Dates: start: 20160916, end: 20160916
  23. TACROLIMUS. [Suspect]
     Active Substance: TACROLIMUS
     Dosage: 3 MG, UNK
     Route: 065
     Dates: start: 20160926, end: 20161009
  24. TACROLIMUS. [Suspect]
     Active Substance: TACROLIMUS
     Dosage: 3.5 MG, UNK
     Route: 065
     Dates: start: 20161010, end: 20161010
  25. DIFLUCAN [Suspect]
     Active Substance: FLUCONAZOLE
     Indication: PROPHYLAXIS
     Dosage: 400 MG, FOR 1 WEEK
     Route: 065
     Dates: end: 20161125

REACTIONS (4)
  - Hepatic failure [Fatal]
  - Diarrhoea [Not Recovered/Not Resolved]
  - Hepatitis acute [Fatal]
  - Rash maculo-papular [Not Recovered/Not Resolved]

NARRATIVE: CASE EVENT DATE: 20161210
